FAERS Safety Report 5638269-8 (Version None)
Quarter: 2008Q1

REPORT INFORMATION
  Report Type: 
  Country: None (occurrence: None)
  Receive Date: 20080222
  Receipt Date: 20080206
  Transmission Date: 20080703
  Serious: Yes (Life-Threatening, Hospitalization)
  Sender: FDA-Public Use
  Company Number: 2007S1000564

PATIENT
  Age: 57 Year
  Sex: Female

DRUGS (8)
  1. CUBICIN [Suspect]
     Indication: CARDIAC DISORDER
     Dosage: 350 MG; Q24H; IV
     Route: 042
     Dates: start: 20071125, end: 20071212
  2. MEROPENEM [Concomitant]
  3. ENALAPRIL MALEATE [Concomitant]
  4. TORASEMIDE SINTROM [Concomitant]
  5. LANACORDIN [Concomitant]
  6. OXYGEN [Concomitant]
  7. LAMOTRIGINE [Concomitant]
  8. VANCOMYCIN [Concomitant]

REACTIONS (17)
  - ACINETOBACTER INFECTION [None]
  - ACUTE PULMONARY OEDEMA [None]
  - ARRHYTHMIA [None]
  - CARDIAC ARREST [None]
  - CARDIOGENIC SHOCK [None]
  - CATHETER SEPSIS [None]
  - COLITIS ISCHAEMIC [None]
  - ENCEPHALOPATHY [None]
  - ENDOCARDITIS [None]
  - EOSINOPHILIA [None]
  - GASTROINTESTINAL HAEMORRHAGE [None]
  - PATHOGEN RESISTANCE [None]
  - POLYNEUROPATHY [None]
  - RASH MACULO-PAPULAR [None]
  - RENAL FAILURE [None]
  - RESPIRATORY FAILURE [None]
  - STAPHYLOCOCCAL SEPSIS [None]
